FAERS Safety Report 8057284-0 (Version None)
Quarter: 2012Q1

REPORT INFORMATION
  Report Type: 
  Country: None (occurrence: None)
  Receive Date: 20120119
  Receipt Date: 20120117
  Transmission Date: 20120608
  Serious: Yes (Death)
  Sender: FDA-Public Use
  Company Number: PHEH2011US012689

PATIENT
  Sex: Male

DRUGS (13)
  1. CENTRUM [Concomitant]
     Dosage: UNK
  2. SPIRIVA [Concomitant]
     Dosage: UNK
  3. GEMFIBROZIL [Concomitant]
     Dosage: 600 MG, UNK
  4. XOPENEX [Concomitant]
     Dosage: UNK
  5. OMEGA [Concomitant]
     Dosage: 3 DF, UNK
  6. AFINITOR [Suspect]
     Dosage: 10 MG, DAILY
     Route: 048
  7. TRAMADOL HCL [Concomitant]
     Dosage: UNK
  8. PROTONIX [Concomitant]
     Dosage: 40 MG, UNK
  9. ASACOL [Concomitant]
     Dosage: 400 MG, UNK
  10. AMITRIPTYLINE HCL [Concomitant]
     Dosage: 25 MG, UNK
  11. DIOVAN HCT [Concomitant]
     Dosage: 1 DF, UNK
  12. MEGESTROL ACETATE [Concomitant]
     Dosage: 20 MG, UNK
  13. FOLIC ACID [Concomitant]
     Dosage: 1 DF, UNK

REACTIONS (2)
  - NEOPLASM PROGRESSION [None]
  - NEOPLASM MALIGNANT [None]
